FAERS Safety Report 16914951 (Version 1)
Quarter: 2019Q4

REPORT INFORMATION
  Report Type: Report from Study
  Country: US (occurrence: US)
  Receive Date: 20191014
  Receipt Date: 20191014
  Transmission Date: 20200122
  Serious: Yes (Hospitalization)
  Sender: FDA-Public Use
  Company Number: US-GILEAD-2019-0432455

PATIENT
  Age: 45 Year
  Sex: Female

DRUGS (2)
  1. AXICABTAGENE CILOLEUCEL [Suspect]
     Active Substance: AXICABTAGENE CILOLEUCEL
     Indication: B-CELL LYMPHOMA
     Dosage: UNK
     Route: 042
     Dates: start: 20180529, end: 20180529
  2. AXICABTAGENE CILOLEUCEL [Suspect]
     Active Substance: AXICABTAGENE CILOLEUCEL
     Indication: DIFFUSE LARGE B-CELL LYMPHOMA

REACTIONS (13)
  - Menopause [Not Recovered/Not Resolved]
  - Anxiety [Recovered/Resolved]
  - Distractibility [Unknown]
  - Taste disorder [Recovered/Resolved]
  - Hot flush [Not Recovered/Not Resolved]
  - Depression [Unknown]
  - Crying [Recovered/Resolved]
  - Pyrexia [Recovered/Resolved]
  - Migraine [Not Recovered/Not Resolved]
  - Mood swings [Not Recovered/Not Resolved]
  - Mood altered [Unknown]
  - Euphoric mood [Unknown]
  - Anger [Unknown]

NARRATIVE: CASE EVENT DATE: 20180601
